FAERS Safety Report 7528164-1 (Version None)
Quarter: 2011Q2

REPORT INFORMATION
  Report Type: 
  Country: None (occurrence: None)
  Receive Date: 20110607
  Receipt Date: 20100504
  Transmission Date: 20111010
  Serious: No
  Sender: FDA-Public Use
  Company Number: US-ASTRAZENECA-2010SE20315

PATIENT
  Age: 61 Year
  Sex: Female

DRUGS (4)
  1. PRILOSEC [Suspect]
     Indication: GASTROOESOPHAGEAL REFLUX DISEASE
     Route: 048
  2. TOPROL GENERIC - METOPROLOL [Concomitant]
  3. ASPIRIN [Concomitant]
  4. VITAMIN TAB [Concomitant]

REACTIONS (5)
  - DRUG DOSE OMISSION [None]
  - REBOUND EFFECT [None]
  - DISCOMFORT [None]
  - PAROSMIA [None]
  - NAUSEA [None]
